FAERS Safety Report 24324551 (Version 3)
Quarter: 2025Q3

REPORT INFORMATION
  Report Type: Spontaneous
  Country: EU (occurrence: EU)
  Receive Date: 20240916
  Receipt Date: 20250809
  Transmission Date: 20251021
  Serious: Yes (Life-Threatening, Other)
  Sender: ALEXION PHARMACEUTICALS
  Company Number: 2024A211053

PATIENT
  Age: 31 Year
  Sex: Female
  Weight: 67 kg

DRUGS (4)
  1. QUETIAPINE FUMARATE [Suspect]
     Active Substance: QUETIAPINE FUMARATE
     Indication: Schizoaffective disorder
  2. QUETIAPINE FUMARATE [Suspect]
     Active Substance: QUETIAPINE FUMARATE
  3. OMEPRAZOLE OBL [Concomitant]
  4. METHYLPHENIDATE HYDROCHLORIDE [Concomitant]
     Active Substance: METHYLPHENIDATE HYDROCHLORIDE
     Route: 065

REACTIONS (15)
  - Hallucination [Not Recovered/Not Resolved]
  - Condition aggravated [Not Recovered/Not Resolved]
  - Headache [Not Recovered/Not Resolved]
  - Insomnia [Not Recovered/Not Resolved]
  - Product substitution issue [Not Recovered/Not Resolved]
  - Drug ineffective [Not Recovered/Not Resolved]
  - Psychotic symptom [Not Recovered/Not Resolved]
  - Dry mouth [Unknown]
  - Fatigue [Unknown]
  - Vision blurred [Unknown]
  - Personality change [Unknown]
  - Psychomotor hyperactivity [Unknown]
  - Memory impairment [Unknown]
  - Haematochezia [Unknown]
  - Dyspepsia [Unknown]
